FAERS Safety Report 10270790 (Version 3)
Quarter: 2019Q1

REPORT INFORMATION
  Report Type: Spontaneous
  Country: DK (occurrence: DK)
  Receive Date: 20140701
  Receipt Date: 20190123
  Transmission Date: 20190417
  Serious: Yes (Other)
  Sender: FDA-Public Use
  Company Number: DK-TEVA-491386ISR

PATIENT
  Sex: Male
  Weight: 62 kg

DRUGS (2)
  1. CLOPIDOGREL ^TEVA^ (HYDROGEN SULFATE) [Suspect]
     Active Substance: CLOPIDOGREL BISULFATE
     Indication: THROMBOSIS
     Dosage: STRENGTH: 75 MG
     Route: 048
  2. CLOPIDOGREL ^KRKA^ [Suspect]
     Active Substance: CLOPIDOGREL BISULFATE
     Indication: THROMBOSIS
     Dosage: STRENGTH: 75 MG
     Route: 048

REACTIONS (8)
  - Insomnia [Not Recovered/Not Resolved]
  - Food allergy [Not Recovered/Not Resolved]
  - Diarrhoea [Not Recovered/Not Resolved]
  - Eye pain [Not Recovered/Not Resolved]
  - Eye pruritus [Not Recovered/Not Resolved]
  - Suicidal ideation [Not Recovered/Not Resolved]
  - Osteoporosis [Not Recovered/Not Resolved]
  - Depression [Not Recovered/Not Resolved]

NARRATIVE: CASE EVENT DATE: 2009
